FAERS Safety Report 9919968 (Version 3)
Quarter: 2014Q2

REPORT INFORMATION
  Report Type: Report from Study
  Country: JP (occurrence: JP)
  Receive Date: 20140224
  Receipt Date: 20140418
  Transmission Date: 20141212
  Serious: Yes (Hospitalization)
  Sender: FDA-Public Use
  Company Number: JP-TAKEDA-2014TJP001758

PATIENT
  Age: 72 Year
  Sex: Male
  Weight: 70.1 kg

DRUGS (5)
  1. PIOGLITAZONE, GLIMEPIRIDE [Suspect]
     Indication: TYPE 2 DIABETES MELLITUS
     Dosage: 1 DF, QD
     Route: 048
     Dates: start: 20130117, end: 20131218
  2. NELBIS [Concomitant]
     Indication: TYPE 2 DIABETES MELLITUS
     Dosage: 750 MG, 1 DAYS
     Route: 048
     Dates: end: 20130719
  3. AMLODIN OD [Concomitant]
     Dosage: UNK
     Route: 048
  4. DIOVAN [Concomitant]
     Dosage: UNK
     Route: 048
  5. FEBURIC [Concomitant]
     Dosage: UNK
     Route: 048

REACTIONS (1)
  - Cholelithiasis [Recovered/Resolved]
